FAERS Safety Report 11470979 (Version 2)
Quarter: 2015Q3

REPORT INFORMATION
  Report Type: Spontaneous
  Country: US (occurrence: US)
  Receive Date: 20150903
  Receipt Date: 20150903
  Transmission Date: 20151125
  Serious: No
  Sender: FDA-Public Use
  Company Number: US-ELI_LILLY_AND_COMPANY-US201108002018

PATIENT
  Age: 42 Year
  Sex: Female

DRUGS (3)
  1. CYMBALTA [Suspect]
     Active Substance: DULOXETINE HYDROCHLORIDE
     Indication: FIBROMYALGIA
     Dosage: 30 MG, QD
     Dates: start: 20110730, end: 20110730
  2. LITHIUM. [Concomitant]
     Active Substance: LITHIUM
     Dosage: UNK, TID
  3. CYMBALTA [Suspect]
     Active Substance: DULOXETINE HYDROCHLORIDE
     Dosage: 30 MG, QD
     Dates: start: 20110802, end: 20110803

REACTIONS (10)
  - Palpitations [Unknown]
  - Drug dose omission [Recovered/Resolved]
  - Nausea [Unknown]
  - Photophobia [Unknown]
  - Hyperhidrosis [Unknown]
  - Vomiting [Unknown]
  - Agitation [Unknown]
  - Migraine [Unknown]
  - Hyperaesthesia [Unknown]
  - Hyperacusis [Unknown]

NARRATIVE: CASE EVENT DATE: 20110730
